FAERS Safety Report 10022027 (Version 1)
Quarter: 2014Q1

REPORT INFORMATION
  Report Type: Spontaneous
  Country: US (occurrence: None)
  Receive Date: 20140318
  Receipt Date: 20140318
  Transmission Date: 20141002
  Serious: Yes (Hospitalization)
  Sender: FDA-Public Use
  Company Number: None

PATIENT
  Age: 60 Year
  Sex: Female
  Weight: 52.3 kg

DRUGS (13)
  1. ALFA INTERFERON 2B [Suspect]
     Dosage: 362 MU
     Dates: end: 20131115
  2. ALPRAZOLAM [Concomitant]
  3. AMITRIPTYLINE [Concomitant]
  4. ATORVASTATIN [Concomitant]
  5. CELEBREX [Concomitant]
  6. CEPHALEXIN [Concomitant]
  7. CYMBALTA [Concomitant]
  8. HYDROCODONE-ACETAMINOPHEN [Concomitant]
  9. PERCOCET [Concomitant]
  10. PROMETHAZINE [Concomitant]
  11. SULFAMETHOXAZOLE [Concomitant]
  12. XANAZ [Concomitant]
  13. ZOLPIDEM TARTRATE [Concomitant]

REACTIONS (1)
  - Neutrophil count decreased [None]
